FAERS Safety Report 16706262 (Version 3)
Quarter: 2019Q3

REPORT INFORMATION
  Report Type: Spontaneous
  Country: US (occurrence: US)
  Receive Date: 20190815
  Receipt Date: 20190924
  Transmission Date: 20191004
  Serious: Yes (Other)
  Sender: FDA-Public Use
  Company Number: US-PFIZER INC-2019347954

PATIENT
  Age: 68 Year
  Sex: Female
  Weight: 89 kg

DRUGS (17)
  1. ZYRTEC [Concomitant]
     Active Substance: CETIRIZINE HYDROCHLORIDE
     Indication: HYPERSENSITIVITY
     Dosage: 10 MG, 1X/DAY (STARTED ABOUT 4 YEARS AGO)
     Route: 048
  2. LEVOTHYROXIN [Concomitant]
     Active Substance: LEVOTHYROXINE
     Indication: HYPOTHYROIDISM
     Dosage: 150 UG, 1X/DAY
     Dates: start: 1962
  3. LETROZOLE. [Concomitant]
     Active Substance: LETROZOLE
     Dosage: 2.5 MG, 1X/DAY
     Route: 048
     Dates: start: 201906
  4. CALCIUM [Concomitant]
     Active Substance: CALCIUM
     Indication: WHITE BLOOD CELL COUNT DECREASED
  5. IBRANCE [Suspect]
     Active Substance: PALBOCICLIB
     Dosage: 125 MG, 1X/DAY (QD)
     Route: 048
     Dates: start: 20190905
  6. CYMBALTA [Concomitant]
     Active Substance: DULOXETINE HYDROCHLORIDE
     Dosage: 30 MG, 1X/DAY
     Dates: start: 2004
  7. IBRANCE [Suspect]
     Active Substance: PALBOCICLIB
     Indication: METASTASES TO BONE
     Dosage: 125 MG, CYCLIC (ONCE A DAY BY MOUTH FOR 21 DAYS   )
     Route: 048
     Dates: start: 20190708
  8. DULOXETINE. [Concomitant]
     Active Substance: DULOXETINE
     Indication: FIBROMYALGIA
     Dosage: 30 MG, 1X/DAY (STARTED ABOUT 15 YEARS AGO )
     Route: 048
  9. LETROZOLE. [Concomitant]
     Active Substance: LETROZOLE
     Indication: BONE CANCER
     Dosage: 2.5 MG, 1X/DAY
     Dates: start: 20190501, end: 2019
  10. SYNTHROID [Concomitant]
     Active Substance: LEVOTHYROXINE SODIUM
     Indication: HYPOTHYROIDISM
     Dosage: 150 UG, 1X/DAY (STARTED WHEN SHE WAS 11 YEARS OLD )
     Route: 048
  11. VITAMIN D [ERGOCALCIFEROL] [Concomitant]
     Active Substance: ERGOCALCIFEROL
     Indication: NEOPLASM MALIGNANT
     Dosage: 500 MG, 1X/DAY
     Route: 048
     Dates: start: 201906
  12. TRAZODONE [Concomitant]
     Active Substance: TRAZODONE HYDROCHLORIDE
     Indication: SLEEP DISORDER
     Dosage: 100 MG, 1X/DAY [2 TABLETS]
     Route: 048
     Dates: start: 201901
  13. ELIQUIS [Concomitant]
     Active Substance: APIXABAN
     Indication: DEEP VEIN THROMBOSIS
     Dosage: 5 MG, 2X/DAY
     Dates: start: 20190307
  14. CALCIUM [Concomitant]
     Active Substance: CALCIUM
     Indication: NEOPLASM MALIGNANT
     Dosage: 1200 MG, 1X/DAY
     Route: 048
     Dates: start: 20190609
  15. IBRANCE [Suspect]
     Active Substance: PALBOCICLIB
     Indication: BREAST CANCER METASTATIC
     Dosage: 125 MG, 1X/DAY (QD)
     Route: 048
     Dates: start: 20190609, end: 2019
  16. GABAPENTIN. [Concomitant]
     Active Substance: GABAPENTIN
     Indication: NEUROPATHY PERIPHERAL
     Dosage: 300 MG, 2X/DAY (STARTED ABOUT 7 YEARS AGO)
     Route: 048
  17. MAGNESIUM [Concomitant]
     Active Substance: MAGNESIUM
     Dosage: 500 MG, 1X/DAY
     Dates: start: 2016

REACTIONS (10)
  - Night sweats [Not Recovered/Not Resolved]
  - Asthenia [Not Recovered/Not Resolved]
  - Arthralgia [Not Recovered/Not Resolved]
  - Malaise [Not Recovered/Not Resolved]
  - Headache [Not Recovered/Not Resolved]
  - Nausea [Not Recovered/Not Resolved]
  - Hot flush [Not Recovered/Not Resolved]
  - Neoplasm progression [Unknown]
  - Feeling of body temperature change [Not Recovered/Not Resolved]
  - Decreased appetite [Unknown]

NARRATIVE: CASE EVENT DATE: 20190731
